FAERS Safety Report 6016222-2 (Version None)
Quarter: 2008Q4

REPORT INFORMATION
  Report Type: 
  Country: None (occurrence: None)
  Receive Date: 20081218
  Receipt Date: 20081204
  Transmission Date: 20090506
  Serious: Yes (Hospitalization)
  Sender: FDA-Public Use
  Company Number: 440011M08USA

PATIENT

DRUGS (1)
  1. SEROSTIM [Suspect]
     Indication: CACHEXIA
     Dates: end: 20080901

REACTIONS (3)
  - CONCOMITANT DISEASE PROGRESSION [None]
  - IMPAIRED GASTRIC EMPTYING [None]
  - NEUROPATHY PERIPHERAL [None]
